FAERS Safety Report 8282281-X (Version None)
Quarter: 2012Q2

REPORT INFORMATION
  Report Type: 
  Country: None (occurrence: None)
  Receive Date: 20120413
  Receipt Date: 20120404
  Transmission Date: 20120825
  Serious: Yes (Hospitalization)
  Sender: FDA-Public Use
  Company Number: US-JNJFOC-20120204785

PATIENT
  Sex: Female
  Weight: 60 kg

DRUGS (5)
  1. HUMIRA [Concomitant]
     Dates: start: 20090601
  2. MERCAPTOPURINE [Concomitant]
  3. ANTIBIOTICS [Concomitant]
     Indication: INFLAMMATORY BOWEL DISEASE
  4. REMICADE [Suspect]
     Indication: INFLAMMATORY BOWEL DISEASE
     Dosage: DISCONTINUED ON AN UNSPECIFIED DATE PRIOR TO ENROLLMENT
     Route: 042
     Dates: start: 20081004
  5. HUMIRA [Concomitant]
     Indication: INFLAMMATORY BOWEL DISEASE
     Dates: start: 20120212

REACTIONS (1)
  - ABDOMINAL ABSCESS [None]
